FAERS Safety Report 4976761-X (Version None)
Quarter: 2006Q2

REPORT INFORMATION
  Report Type: 
  Country: None (occurrence: None)
  Receive Date: 20060419
  Receipt Date: 20060417
  Transmission Date: 20061013
  Serious: Yes (Other)
  Sender: FDA-Public Use
  Company Number: US-GLAXOSMITHKLINE-A0601976A

PATIENT
  Age: 26 Year
  Sex: Female

DRUGS (3)
  1. LAMICTAL [Suspect]
     Indication: BIPOLAR DISORDER
     Dosage: 100MG TWICE PER DAY
     Route: 048
     Dates: start: 20060101
  2. PRENATAL VITAMINS [Concomitant]
  3. LEXAPRO [Concomitant]

REACTIONS (5)
  - BLOOD HUMAN CHORIONIC GONADOTROPIN ABNORMAL [None]
  - DRUG EXPOSURE DURING PREGNANCY [None]
  - ECTOPIC PREGNANCY [None]
  - ULTRASOUND SCAN ABNORMAL [None]
  - VAGINAL HAEMORRHAGE [None]
